FAERS Safety Report 9121014 (Version 1)
Quarter: 2013Q1

REPORT INFORMATION
  Report Type: Report from Study
  Country: US (occurrence: US)
  Receive Date: 20130226
  Receipt Date: 20130226
  Transmission Date: 20140127
  Serious: Yes (Other)
  Sender: FDA-Public Use
  Company Number: US-MPIJNJ-2013-01346

PATIENT
  Age: 17 Year
  Sex: Female
  Weight: 59.6 kg

DRUGS (5)
  1. VELCADE [Suspect]
     Indication: ACUTE MYELOID LEUKAEMIA
     Dosage: 1.3 MG/M2, CYCLIC
     Route: 040
     Dates: start: 20130117, end: 20130125
  2. CYTARABINE [Suspect]
     Indication: ACUTE MYELOID LEUKAEMIA
     Dosage: UNK, CYCLIC
     Route: 037
     Dates: start: 20130117, end: 20130131
  3. CYTARABINE [Suspect]
     Dosage: 100 MG/M2, CYCLIC
     Route: 042
     Dates: start: 20130117, end: 20130127
  4. DAUNORUBICIN HYDROCHLORIDE [Suspect]
     Indication: ACUTE MYELOID LEUKAEMIA
     Dosage: 50 MG/M2, CYCLIC
     Route: 042
     Dates: start: 20130117, end: 20130121
  5. ETOPOSIDE [Suspect]
     Indication: ACUTE MYELOID LEUKAEMIA
     Dosage: 100 MG/M2, CYCLIC
     Route: 042
     Dates: start: 20130117, end: 20130121

REACTIONS (1)
  - Caecitis [Recovering/Resolving]
